FAERS Safety Report 13121281 (Version 1)
Quarter: 2017Q1

REPORT INFORMATION
  Report Type: Spontaneous
  Country: US (occurrence: US)
  Receive Date: 20170114
  Receipt Date: 20170114
  Transmission Date: 20170428
  Serious: Yes (Hospitalization)
  Sender: FDA-Public Use
  Company Number: None

PATIENT
  Age: 16 Year
  Sex: Male

DRUGS (1)
  1. GENOTROPIN [Suspect]
     Active Substance: SOMATROPIN
     Indication: DWARFISM
     Route: 058
     Dates: start: 20150406

REACTIONS (6)
  - Fall [None]
  - Unresponsive to stimuli [None]
  - Cyanosis [None]
  - Sports injury [None]
  - Seizure like phenomena [None]
  - Concussion [None]

NARRATIVE: CASE EVENT DATE: 201701
